FAERS Safety Report 17853043 (Version 1)
Quarter: 2020Q2

REPORT INFORMATION
  Report Type: Spontaneous
  Country: ES (occurrence: ES)
  Receive Date: 20200602
  Receipt Date: 20200602
  Transmission Date: 20200714
  Serious: Yes (Hospitalization)
  Sender: FDA-Public Use
  Company Number: ES-ROCHE-2609940

PATIENT
  Age: 54 Year
  Sex: Male

DRUGS (3)
  1. TOCILIZUMAB. [Suspect]
     Active Substance: TOCILIZUMAB
     Indication: COVID-19 PNEUMONIA
     Route: 042
     Dates: start: 20200403, end: 20200403
  2. DOLQUINE [Suspect]
     Active Substance: HYDROXYCHLOROQUINE SULFATE
     Indication: COVID-19 PNEUMONIA
     Dosage: 400 MG DIA
     Route: 048
     Dates: start: 20200402, end: 20200407
  3. PARACETAMOL [Suspect]
     Active Substance: ACETAMINOPHEN
     Indication: PRODUCT USED FOR UNKNOWN INDICATION
     Dosage: 1GR CADA 8 HORAS
     Route: 042
     Dates: start: 20200402, end: 20200407

REACTIONS (5)
  - Haemolytic anaemia [Not Recovered/Not Resolved]
  - Hepatitis [Not Recovered/Not Resolved]
  - Rectal haemorrhage [Not Recovered/Not Resolved]
  - Condition aggravated [Not Recovered/Not Resolved]
  - Hyperbilirubinaemia [Not Recovered/Not Resolved]

NARRATIVE: CASE EVENT DATE: 20200405
